FAERS Safety Report 6635379-3 (Version None)
Quarter: 2010Q1

REPORT INFORMATION
  Report Type: 
  Country: None (occurrence: None)
  Receive Date: 20100311
  Receipt Date: 20100311
  Transmission Date: 20100710
  Serious: Yes (Other)
  Sender: FDA-Public Use
  Company Number: None

PATIENT
  Sex: Female

DRUGS (8)
  1. PHENAZOPYRIDINE HCL TAB [Suspect]
     Indication: CYSTITIS INTERSTITIAL
     Dosage: 200MG THREE TIMES DAILY PO
     Route: 048
     Dates: start: 20091220, end: 20091223
  2. BETHANECHOL [Concomitant]
  3. CEFTRIAXONE [Concomitant]
  4. ENOXAPARIN SODIUM [Concomitant]
  5. GEMFIBROZIL [Concomitant]
  6. HYDROCODONE BITARTRATE AND ACETAMINOPHEN [Concomitant]
  7. REGULAR INSULIN [Concomitant]
  8. ONDANSETRON [Concomitant]

REACTIONS (3)
  - BLISTER [None]
  - RASH PAPULAR [None]
  - SKIN DISCOLOURATION [None]
